FAERS Safety Report 13460933 (Version 1)
Quarter: 2017Q2

REPORT INFORMATION
  Report Type: Report from Study
  Country: BG (occurrence: BG)
  Receive Date: 20170420
  Receipt Date: 20170420
  Transmission Date: 20170830
  Serious: Yes (Hospitalization)
  Sender: FDA-Public Use
  Company Number: BG-ROCHE-1284003

PATIENT
  Age: 50 Year
  Sex: Male
  Weight: 82 kg

DRUGS (22)
  1. METHYLPREDNISOLONE. [Concomitant]
     Active Substance: METHYLPREDNISOLONE
     Indication: PREMEDICATION
     Route: 065
     Dates: start: 20120227, end: 20120227
  2. METHYLPREDNISOLONE. [Concomitant]
     Active Substance: METHYLPREDNISOLONE
     Route: 065
     Dates: start: 20120312, end: 20120312
  3. METHYLPREDNISOLONE. [Concomitant]
     Active Substance: METHYLPREDNISOLONE
     Route: 065
     Dates: start: 20130715, end: 20130715
  4. CAVINTON [Concomitant]
     Active Substance: VINPOCETINE
     Route: 065
     Dates: start: 20111125, end: 20111130
  5. METHYLPREDNISOLONE. [Concomitant]
     Active Substance: METHYLPREDNISOLONE
     Route: 065
     Dates: start: 20120717, end: 20120719
  6. METHYLPREDNISOLONE. [Concomitant]
     Active Substance: METHYLPREDNISOLONE
     Route: 065
     Dates: start: 20130128, end: 20130128
  7. PEVISONE [Concomitant]
     Active Substance: ECONAZOLE
     Route: 065
     Dates: start: 20120728, end: 20120812
  8. OCRELIZUMAB [Suspect]
     Active Substance: OCRELIZUMAB
     Dosage: TOTAL VOLUME 500ML
     Route: 042
     Dates: start: 20120813, end: 20120813
  9. METHYLPREDNISOLONE. [Concomitant]
     Active Substance: METHYLPREDNISOLONE
     Route: 065
     Dates: start: 20120813, end: 20120813
  10. PERFALGAN [Concomitant]
     Active Substance: ACETAMINOPHEN
     Indication: PREMEDICATION
     Route: 065
     Dates: start: 20120227
  11. BACLOFEN. [Concomitant]
     Active Substance: BACLOFEN
     Route: 065
     Dates: start: 2011
  12. SOMAZINA [Concomitant]
     Active Substance: CITICOLINE
     Route: 065
     Dates: start: 20111125, end: 20111130
  13. QUAMATEL [Concomitant]
     Active Substance: FAMOTIDINE
     Route: 065
     Dates: start: 20111125, end: 20111130
  14. PLACEBO [Suspect]
     Active Substance: UNSPECIFIED INGREDIENT
     Indication: MULTIPLE SCLEROSIS RELAPSE
     Route: 058
     Dates: start: 20120227, end: 20131004
  15. METHYLPREDNISOLONE. [Concomitant]
     Active Substance: METHYLPREDNISOLONE
     Route: 065
     Dates: start: 20120720, end: 20120721
  16. PEVISONE [Concomitant]
     Active Substance: ECONAZOLE
     Route: 065
     Dates: start: 20120718, end: 20120728
  17. OCRELIZUMAB [Suspect]
     Active Substance: OCRELIZUMAB
     Dosage: TOTAL VOLUME 200ML
     Route: 042
     Dates: start: 20120312, end: 20120312
  18. METHYLPREDNISOLONE. [Concomitant]
     Active Substance: METHYLPREDNISOLONE
     Route: 065
     Dates: start: 20100519, end: 20100523
  19. NEXIUM [Concomitant]
     Active Substance: ESOMEPRAZOLE MAGNESIUM
     Route: 065
     Dates: start: 20120717, end: 20120721
  20. OCRELIZUMAB [Suspect]
     Active Substance: OCRELIZUMAB
     Indication: MULTIPLE SCLEROSIS RELAPSE
     Dosage: DUAL INFUSIONS GIVEN ON DAYS 1 AND 15 FOR THE FIRST 24-WEEK TREATMENT CYCLE (300 MG) AND THEN A SING
     Route: 042
     Dates: start: 20120227, end: 20120227
  21. OCRELIZUMAB [Suspect]
     Active Substance: OCRELIZUMAB
     Dosage: TOTAL VOLUME 520ML
     Route: 042
     Dates: start: 20130128, end: 20130128
  22. OCRELIZUMAB [Suspect]
     Active Substance: OCRELIZUMAB
     Dosage: TOTAL VOLUME 520ML
     Route: 042
     Dates: start: 20130715, end: 20130715

REACTIONS (1)
  - Renal cancer [Recovered/Resolved with Sequelae]

NARRATIVE: CASE EVENT DATE: 20130930
